FAERS Safety Report 8329520-4 (Version None)
Quarter: 2012Q2

REPORT INFORMATION
  Report Type: 
  Country: None (occurrence: None)
  Receive Date: 20120502
  Receipt Date: 20120427
  Transmission Date: 20120825
  Serious: Yes (Hospitalization)
  Sender: FDA-Public Use
  Company Number: US-ROCHE-1064707

PATIENT
  Age: 55 Year
  Sex: Male

DRUGS (1)
  1. PEGINTERFERON ALFA-2A [Suspect]
     Indication: HEPATITIS C
     Route: 065

REACTIONS (4)
  - FATIGUE [None]
  - MALAISE [None]
  - RENAL FAILURE ACUTE [None]
  - TRANSIENT ISCHAEMIC ATTACK [None]
